FAERS Safety Report 8209643-0 (Version None)
Quarter: 2012Q1

REPORT INFORMATION
  Report Type: 
  Country: None (occurrence: None)
  Receive Date: 20120228
  Receipt Date: 20111108
  Transmission Date: 20120608
  Serious: Yes (Other)
  Sender: FDA-Public Use
  Company Number: DEP_00527_2011

PATIENT
  Sex: Female

DRUGS (10)
  1. GRALISE [Suspect]
     Indication: PRODUCT USED FOR UNKNOWN INDICATION
     Dosage: (600 MG QD ORAL), (300 MG QD ORAL)
     Route: 048
     Dates: start: 20111103, end: 20111108
  2. GRALISE [Suspect]
     Indication: PRODUCT USED FOR UNKNOWN INDICATION
     Dosage: (600 MG QD ORAL), (300 MG QD ORAL)
     Route: 048
     Dates: start: 20110101, end: 20111103
  3. PROCARDIA /00340701/ [Concomitant]
  4. ATENOLOL [Concomitant]
  5. TEGRETOL [Concomitant]
  6. VITAMIN D [Concomitant]
  7. LISINOPRIL [Concomitant]
  8. VYTORIN [Concomitant]
  9. MOTRIN [Concomitant]
  10. ATIVAN [Concomitant]

REACTIONS (2)
  - LIP SWELLING [None]
  - SWOLLEN TONGUE [None]
